FAERS Safety Report 15177199 (Version 1)
Quarter: 2018Q4

REPORT INFORMATION
  Report Type: Spontaneous
  Country: US (occurrence: US)
  Receive Date: 20180720
  Receipt Date: 20180720
  Transmission Date: 20190204
  Serious: No
  Sender: FDA-Public Use
  Company Number: US-CELGENEUS-USA-20180703110

PATIENT
  Sex: Female

DRUGS (3)
  1. AZACITIDINE. [Suspect]
     Active Substance: AZACITIDINE
     Indication: ACUTE LEUKAEMIA
     Dosage: 75 MILLIGRAM/SQ. METER
     Route: 041
  2. PINOMETOSTAT [Suspect]
     Active Substance: PINOMETOSTAT
     Dosage: 90 MILLIGRAM/SQ. METER
     Route: 041
  3. PINOMETOSTAT [Suspect]
     Active Substance: PINOMETOSTAT
     Indication: ACUTE LEUKAEMIA
     Dosage: 54 MILLIGRAM/SQ. METER
     Route: 041

REACTIONS (2)
  - Unevaluable event [Unknown]
  - Skin lesion [Unknown]
